FAERS Safety Report 16976259 (Version 1)
Quarter: 2019Q4

REPORT INFORMATION
  Report Type: Spontaneous
  Country: US (occurrence: US)
  Receive Date: 20191030
  Receipt Date: 20191030
  Transmission Date: 20200122
  Serious: Yes (Other)
  Sender: FDA-Public Use
  Company Number: US-BAYER-2019-192325

PATIENT
  Sex: Female

DRUGS (1)
  1. RID ESSENTIAL LICE ELIMINATION KIT [Suspect]
     Active Substance: PIPERONYL BUTOXIDE\PYRETHRUM EXTRACT
     Indication: LICE INFESTATION
     Dosage: UNK
     Route: 061

REACTIONS (3)
  - Blister infected [None]
  - Burns second degree [Unknown]
  - Pain [Unknown]
